FAERS Safety Report 4345888-8 (Version None)
Quarter: 2004Q2

REPORT INFORMATION
  Report Type: 
  Country: None (occurrence: None)
  Receive Date: 20040423
  Receipt Date: 20040423
  Transmission Date: 20050107
  Serious: Yes (Hospitalization)
  Sender: FDA-Public Use
  Company Number: None

PATIENT
  Age: 57 Year
  Sex: Male
  Weight: 113.8529 kg

DRUGS (1)
  1. GATIFLOXACIN [Suspect]
     Indication: BRONCHITIS ACUTE
     Dosage: 400 MG DAILY ORAL
     Route: 048
     Dates: start: 20040417, end: 20040422

REACTIONS (1)
  - HYPOGLYCAEMIA [None]
